FAERS Safety Report 18292498 (Version 1)
Quarter: 2020Q3

REPORT INFORMATION
  Report Type: Spontaneous
  Country: CZ (occurrence: CZ)
  Receive Date: 20200922
  Receipt Date: 20200922
  Transmission Date: 20201103
  Serious: Yes (Other)
  Sender: FDA-Public Use
  Company Number: CZ-AUROBINDO-AUR-APL-2020-048444

PATIENT
  Age: 13 Year
  Sex: Male

DRUGS (6)
  1. AMOXICILLIN+CLAVULANIC ACID [Suspect]
     Active Substance: AMOXICILLIN\CLAVULANIC ACID
     Indication: PNEUMONIA
     Dosage: UNK
     Route: 065
     Dates: start: 202008, end: 202008
  2. SUFENTA [Concomitant]
     Active Substance: SUFENTANIL CITRATE
     Indication: SEDATION
     Dosage: UNK
     Route: 065
  3. MERONEM [Suspect]
     Active Substance: MEROPENEM
     Indication: PNEUMONIA
     Dosage: UNK
     Route: 065
     Dates: start: 202008, end: 202008
  4. METRONIDAZOLE. [Suspect]
     Active Substance: METRONIDAZOLE
     Indication: PNEUMONIA
     Dosage: UNK
     Route: 065
     Dates: start: 202008, end: 202008
  5. GENTAMICIN. [Suspect]
     Active Substance: GENTAMICIN
     Indication: PNEUMONIA
     Dosage: UNK
     Route: 065
     Dates: start: 202008, end: 202008
  6. DORMICUM [Concomitant]
     Indication: SEDATION
     Dosage: UNK
     Route: 065

REACTIONS (2)
  - Pathogen resistance [Recovered/Resolved]
  - Drug ineffective [Recovered/Resolved]

NARRATIVE: CASE EVENT DATE: 202008
